FAERS Safety Report 4999796-X (Version None)
Quarter: 2006Q2

REPORT INFORMATION
  Report Type: 
  Country: None (occurrence: None)
  Receive Date: 20060509
  Receipt Date: 20060428
  Transmission Date: 20061013
  Serious: Yes (Disabling)
  Sender: FDA-Public Use
  Company Number: HQWYE111502MAY06

PATIENT
  Age: 38 Year
  Sex: Male

DRUGS (13)
  1. EFFEXOR XR [Suspect]
     Indication: ANXIETY
     Dosage: 150 + 75 + 37.5 MG 1X PER 1 DAY, ORAL
     Route: 048
     Dates: start: 20040201, end: 20060101
  2. EFFEXOR XR [Suspect]
     Indication: DEPRESSION
     Dosage: 150 + 75 + 37.5 MG 1X PER 1 DAY, ORAL
     Route: 048
     Dates: start: 20040201, end: 20060101
  3. EFFEXOR XR [Suspect]
     Indication: ANXIETY
     Dosage: 150 + 75 + 37.5 MG 1X PER 1 DAY, ORAL
     Route: 048
     Dates: start: 20060101, end: 20060403
  4. EFFEXOR XR [Suspect]
     Indication: DEPRESSION
     Dosage: 150 + 75 + 37.5 MG 1X PER 1 DAY, ORAL
     Route: 048
     Dates: start: 20060101, end: 20060403
  5. EFFEXOR XR [Suspect]
     Indication: ANXIETY
     Dosage: 150 + 75 + 37.5 MG 1X PER 1 DAY, ORAL
     Route: 048
     Dates: start: 20060404, end: 20060410
  6. EFFEXOR XR [Suspect]
     Indication: DEPRESSION
     Dosage: 150 + 75 + 37.5 MG 1X PER 1 DAY, ORAL
     Route: 048
     Dates: start: 20060404, end: 20060410
  7. EFFEXOR XR [Suspect]
     Indication: ANXIETY
     Dosage: 150 + 75 + 37.5 MG 1X PER 1 DAY, ORAL
     Route: 048
     Dates: start: 20060411, end: 20060417
  8. EFFEXOR XR [Suspect]
     Indication: DEPRESSION
     Dosage: 150 + 75 + 37.5 MG 1X PER 1 DAY, ORAL
     Route: 048
     Dates: start: 20060411, end: 20060417
  9. EFFEXOR XR [Suspect]
     Indication: ANXIETY
     Dosage: 150 + 75 + 37.5 MG 1X PER 1 DAY, ORAL
     Route: 048
     Dates: start: 20060418, end: 20060424
  10. EFFEXOR XR [Suspect]
     Indication: DEPRESSION
     Dosage: 150 + 75 + 37.5 MG 1X PER 1 DAY, ORAL
     Route: 048
     Dates: start: 20060418, end: 20060424
  11. ALTACE [Concomitant]
  12. IMITREX [Concomitant]
  13. VALTREX (VALCICLOVIR HYDROCHLORIDE) [Concomitant]

REACTIONS (7)
  - AFFECT LABILITY [None]
  - DISTURBANCE IN ATTENTION [None]
  - DIZZINESS [None]
  - DRUG WITHDRAWAL SYNDROME [None]
  - FEELING JITTERY [None]
  - IMPAIRED WORK ABILITY [None]
  - INSOMNIA [None]
